FAERS Safety Report 4763986-1 (Version None)
Quarter: 2005Q3

REPORT INFORMATION
  Report Type: 
  Country: None (occurrence: None)
  Receive Date: 20050908
  Receipt Date: 20050906
  Transmission Date: 20060218
  Serious: Yes (Hospitalization)
  Sender: FDA-Public Use
  Company Number: US-MERCK-0509USA00491

PATIENT
  Age: 73 Year
  Sex: Female

DRUGS (5)
  1. PRINIVIL [Suspect]
     Indication: CARDIAC FAILURE CONGESTIVE
     Route: 048
  2. DIGOXIN [Concomitant]
     Route: 065
  3. PROTONIX [Concomitant]
     Route: 065
  4. LASIX [Concomitant]
     Route: 065
  5. K-LYTE [Concomitant]
     Route: 065

REACTIONS (5)
  - BURNING SENSATION [None]
  - GASTRIC DISORDER [None]
  - PNEUMONIA ASPIRATION [None]
  - RHINITIS [None]
  - SINUSITIS [None]
